FAERS Safety Report 8502620-1 (Version None)
Quarter: 2012Q3

REPORT INFORMATION
  Report Type: 
  Country: None (occurrence: None)
  Receive Date: 20120711
  Receipt Date: 20120703
  Transmission Date: 20120928
  Serious: No
  Sender: FDA-Public Use
  Company Number: US-B.I. PHARMACEUTICALS,INC./RIDGEFIELD-2012-BP-14965BP

PATIENT
  Sex: Female

DRUGS (26)
  1. LOMOTIL [Concomitant]
  2. LYRICA [Concomitant]
  3. ATIVAN [Concomitant]
  4. HYDROCODONE [Concomitant]
  5. CYANOCOBALAMIN [Concomitant]
  6. NAPROXIN [Concomitant]
  7. CIPROFLOXACIN HCL [Concomitant]
  8. CYMBALTA [Concomitant]
  9. ALLEGRA [Concomitant]
  10. GENTEAL [Concomitant]
  11. METAXALONE [Concomitant]
  12. NEXIUM [Concomitant]
  13. FOLIC ACID [Concomitant]
  14. ZYRTEC [Concomitant]
  15. SPIRIVA [Suspect]
     Dosage: 18 MCG
     Route: 048
  16. FEXOFENADINE [Concomitant]
  17. METHYLTEST EST [Concomitant]
  18. OTC ACIDOPHILLIS [Concomitant]
  19. PROVENTIL [Concomitant]
  20. AMOXICILLIN [Concomitant]
  21. LISINOPRIL [Concomitant]
  22. PROMETHAZINE [Concomitant]
  23. SKELAXIN [Concomitant]
  24. ASTRO [Concomitant]
  25. PEN-VEE K [Concomitant]
  26. ZANAFLEX [Concomitant]

REACTIONS (1)
  - BRONCHITIS [None]
